FAERS Safety Report 24402053 (Version 1)
Quarter: 2024Q4

REPORT INFORMATION
  Report Type: Spontaneous
  Country: SI (occurrence: SI)
  Receive Date: 20241007
  Receipt Date: 20241007
  Transmission Date: 20250115
  Serious: Yes (Other)
  Sender: BRISTOL MYERS SQUIBB
  Company Number: SI-BRISTOL-MYERS SQUIBB COMPANY-2024-156347

PATIENT
  Age: 43 Year
  Sex: Female

DRUGS (3)
  1. OPDIVO [Suspect]
     Active Substance: NIVOLUMAB
     Indication: Metastatic renal cell carcinoma
     Dates: start: 202104
  2. OPDIVO [Suspect]
     Active Substance: NIVOLUMAB
     Dates: start: 202107
  3. YERVOY [Suspect]
     Active Substance: IPILIMUMAB
     Indication: Metastatic renal cell carcinoma
     Dates: start: 202104

REACTIONS (7)
  - Confusional state [Unknown]
  - Paranoia [Unknown]
  - Central nervous system lesion [Unknown]
  - Pleocytosis [Unknown]
  - CSF protein increased [Unknown]
  - Headache [Unknown]
  - Depressed mood [Unknown]

NARRATIVE: CASE EVENT DATE: 20210801
